FAERS Safety Report 4428256-X (Version None)
Quarter: 2004Q3

REPORT INFORMATION
  Report Type: 
  Country: None (occurrence: None)
  Receive Date: 20040813
  Receipt Date: 20040729
  Transmission Date: 20050211
  Serious: Yes (Death)
  Sender: FDA-Public Use
  Company Number: M2004.1041

PATIENT
  Age: 51 Year

DRUGS (4)
  1. RIMACTANE [Suspect]
     Indication: PULMONARY TUBERCULOSIS
  2. ISONIAZID [Suspect]
     Indication: PULMONARY TUBERCULOSIS
  3. ETHAMBUTOL HCL [Suspect]
     Indication: PULMONARY TUBERCULOSIS
  4. PYRAZINAMIDE [Suspect]
     Indication: PULMONARY TUBERCULOSIS

REACTIONS (3)
  - HEPATOTOXICITY [None]
  - PANCREATITIS HAEMORRHAGIC [None]
  - SEPTIC SHOCK [None]
